FAERS Safety Report 6339759-5 (Version None)
Quarter: 2009Q3

REPORT INFORMATION
  Report Type: 
  Country: None (occurrence: None)
  Receive Date: 20090903
  Receipt Date: 20090825
  Transmission Date: 20100115
  Serious: Yes (Other)
  Sender: FDA-Public Use
  Company Number: FR-ELI_LILLY_AND_COMPANY-FR200908005853

PATIENT
  Sex: Female

DRUGS (3)
  1. ZYPREXA [Suspect]
     Indication: DYSTHYMIC DISORDER
     Dosage: 5 MG, DAILY (1/D)
     Route: 048
     Dates: start: 20090529, end: 20090604
  2. ZYPREXA [Interacting]
     Dosage: 7.5 MG, DAILY (1/D)
     Route: 048
     Dates: start: 20090605
  3. EFFEXOR [Concomitant]
     Indication: DYSTHYMIC DISORDER
     Dosage: 75 MG, DAILY (1/D)
     Route: 048
     Dates: start: 20090605

REACTIONS (2)
  - AMNESIA [None]
  - DRUG INTERACTION [None]
